FAERS Safety Report 10628790 (Version 1)
Quarter: 2014Q4

REPORT INFORMATION
  Report Type: Spontaneous
  Country: US (occurrence: US)
  Receive Date: 20141205
  Receipt Date: 20141205
  Transmission Date: 20150529
  Serious: Yes (Hospitalization)
  Sender: FDA-Public Use
  Company Number: US-BRISTOL-MYERS SQUIBB COMPANY-21328695

PATIENT
  Age: 83 Year
  Sex: Female
  Weight: 47.16 kg

DRUGS (2)
  1. ASPIRIN. [Suspect]
     Active Substance: ASPIRIN
  2. COUMADIN [Suspect]
     Active Substance: WARFARIN SODIUM

REACTIONS (5)
  - Skin discolouration [Unknown]
  - Contusion [Unknown]
  - Confusional state [Unknown]
  - Neck pain [Unknown]
  - Adverse event [Unknown]
